FAERS Safety Report 6882740-8 (Version None)
Quarter: 2010Q3

REPORT INFORMATION
  Report Type: 
  Country: None (occurrence: None)
  Receive Date: 20100727
  Receipt Date: 20100721
  Transmission Date: 20110219
  Serious: Yes (Other)
  Sender: FDA-Public Use
  Company Number: 20109060

PATIENT
  Sex: Male

DRUGS (1)
  1. LIORESAL [Suspect]
     Indication: MUSCLE SPASTICITY
     Dosage: MCG, DAILY, INTRATHECAL
     Route: 037

REACTIONS (6)
  - DEVICE BREAKAGE [None]
  - DEVICE DISLOCATION [None]
  - HEADACHE [None]
  - INTRACRANIAL HYPOTENSION [None]
  - PAIN [None]
  - SUTURE RELATED COMPLICATION [None]
